FAERS Safety Report 16197138 (Version 4)
Quarter: 2020Q1

REPORT INFORMATION
  Report Type: Spontaneous
  Country: US (occurrence: US)
  Receive Date: 20190415
  Receipt Date: 20200106
  Transmission Date: 20200409
  Serious: No
  Sender: FDA-Public Use
  Company Number: US-PFIZER INC-2019156844

PATIENT
  Age: 50 Year
  Sex: Female

DRUGS (1)
  1. XELJANZ XR [Suspect]
     Active Substance: TOFACITINIB CITRATE
     Indication: RHEUMATOID ARTHRITIS
     Dosage: 11 MG, UNK
     Dates: start: 20190319

REACTIONS (6)
  - Dizziness [Unknown]
  - Headache [Unknown]
  - Influenza [Unknown]
  - Ear infection [Unknown]
  - Rhinorrhoea [Unknown]
  - Back pain [Unknown]
